FAERS Safety Report 26210005 (Version 1)
Quarter: 2025Q4

REPORT INFORMATION
  Report Type: Spontaneous
  Country: BY (occurrence: BY)
  Receive Date: 20251229
  Receipt Date: 20251229
  Transmission Date: 20260118
  Serious: Yes (Life-Threatening, Other)
  Sender: MYLAN
  Company Number: BY-MYLANLABS-2025M1111404

PATIENT
  Age: 24 Year
  Sex: Female

DRUGS (2)
  1. FONDAPARINUX [Suspect]
     Active Substance: FONDAPARINUX
     Indication: Anticoagulant therapy
     Dosage: 7.5 MILLIGRAM, QD (2 HOURS BEFORE THE EXPECTED ADMINISTRATION OF LMWH)
  2. AMIKACIN [Concomitant]
     Active Substance: AMIKACIN
     Indication: Antibiotic prophylaxis
     Dosage: 500 MILLIGRAM, QD (500 MG TWICE DAILY)

REACTIONS (1)
  - Drug ineffective [Unknown]
